FAERS Safety Report 11087909 (Version 1)
Quarter: 2015Q2

REPORT INFORMATION
  Report Type: Spontaneous
  Country: ES (occurrence: ES)
  Receive Date: 20150504
  Receipt Date: 20150504
  Transmission Date: 20150821
  Serious: Yes (Hospitalization)
  Sender: FDA-Public Use
  Company Number: ES-SA-2015SA053729

PATIENT
  Age: 70 Year
  Sex: Female

DRUGS (17)
  1. ENALAPRIL [Interacting]
     Active Substance: ENALAPRIL
     Indication: CARDIAC FAILURE CONGESTIVE
     Dosage: 1-0-0
     Route: 048
     Dates: start: 20140103, end: 20140422
  2. SYMBICORT FORTE TURBOHALER [Concomitant]
     Indication: CHRONIC OBSTRUCTIVE PULMONARY DISEASE
     Dosage: 1 INH/12H; 320 MICROGRAMS / 9 MICROGRAMS / INHALATION P
     Route: 055
     Dates: start: 2012
  3. MASTICAL D [Concomitant]
     Indication: HYPOCALCAEMIA
     Dosage: MASTICAL D 500 MG / 800 IU CHEWABLE TABLETS, 30 TABLETS; 1-0-1
     Route: 048
     Dates: start: 20140103
  4. SEGURIL [Suspect]
     Active Substance: FUROSEMIDE
     Indication: CARDIAC FAILURE CONGESTIVE
     Dosage: 1-1-0
     Route: 048
     Dates: start: 20140103
  5. ALDACTONE [Interacting]
     Active Substance: SPIRONOLACTONE
     Indication: CARDIAC FAILURE CONGESTIVE
     Dosage: 1-0-0
     Route: 048
     Dates: start: 20140103, end: 20140422
  6. KOMBOGLYZE [Concomitant]
     Active Substance: METFORMIN HYDROCHLORIDE\SAXAGLIPTIN
     Indication: TYPE 2 DIABETES MELLITUS
     Dosage: 2.5 MG/850 MG; 56 TABLETS
     Route: 048
     Dates: start: 20140103, end: 20140422
  7. GABAPENTIN. [Concomitant]
     Active Substance: GABAPENTIN
     Indication: PAIN
     Dosage: 1-1-1
     Route: 048
     Dates: start: 2012
  8. OMEPRAZOLE. [Concomitant]
     Active Substance: OMEPRAZOLE
     Indication: PROPHYLAXIS
     Dosage: 1 CP
     Route: 048
     Dates: start: 2012
  9. SINTROM [Concomitant]
     Active Substance: ACENOCOUMAROL
     Indication: PULMONARY EMBOLISM
     Dosage: 4 MG TABLETS, 20 TABLETS
     Route: 048
     Dates: start: 2010
  10. SALBUTAMOL [Concomitant]
     Active Substance: ALBUTEROL
     Indication: CHRONIC OBSTRUCTIVE PULMONARY DISEASE
     Dosage: 1-1-1
     Route: 055
     Dates: start: 2012
  11. SEGURIL [Interacting]
     Active Substance: FUROSEMIDE
     Indication: CARDIAC FAILURE CONGESTIVE
     Dosage: MST CONTINUS 15 MG EXTENDED RELEASE TABLETS, 60 TABLETS; 1-1-0
     Route: 048
     Dates: start: 20140103
  12. LANTUS [Concomitant]
     Active Substance: INSULIN GLARGINE
     Indication: TYPE 2 DIABETES MELLITUS
     Dosage: 100 UNITS / ML SOLUTION FOR INJECTION IN PRE-FILLED PEN, 5 PENS; 39-0-40
     Route: 058
     Dates: start: 2012
  13. ALLOPURINOL. [Concomitant]
     Active Substance: ALLOPURINOL
     Indication: HYPERURICAEMIA
     Dosage: 1 CP
     Route: 048
     Dates: start: 20140103
  14. FERPLEX [Concomitant]
     Indication: IRON DEFICIENCY
     Dosage: 2-0-0
     Route: 048
     Dates: start: 20140103
  15. MST CONTINUS [Concomitant]
     Active Substance: MORPHINE SULFATE
     Indication: PAIN
     Dosage: MST CONTINUS 10 MG PROLONGED RELEASE TABLETS, 60 TABLETS; 3-0-0
     Route: 048
     Dates: start: 20140103
  16. SPIRIVA [Concomitant]
     Active Substance: TIOTROPIUM BROMIDE MONOHYDRATE
     Indication: CHRONIC OBSTRUCTIVE PULMONARY DISEASE
     Dosage: 1 INH DIA;18 MICROGRAMS POWDER FOR INHALATION, 1 INHALER + 30 CAPSULES
     Route: 055
     Dates: start: 2012
  17. SIMVASTATIN. [Concomitant]
     Active Substance: SIMVASTATIN
     Indication: DYSLIPIDAEMIA
     Dosage: 0-0-1
     Route: 048
     Dates: start: 2012

REACTIONS (2)
  - Metabolic encephalopathy [Recovered/Resolved]
  - Acute kidney injury [Recovered/Resolved]

NARRATIVE: CASE EVENT DATE: 20140422
